FAERS Safety Report 5914537-7 (Version None)
Quarter: 2008Q4

REPORT INFORMATION
  Report Type: 
  Country: None (occurrence: None)
  Receive Date: 20081008
  Receipt Date: 20080924
  Transmission Date: 20090506
  Serious: Yes (Other)
  Sender: FDA-Public Use
  Company Number: 2008BI025215

PATIENT
  Age: 38 Year
  Sex: Female

DRUGS (1)
  1. TYSARBI (NATALIZUMAB) [Suspect]
     Indication: MULTIPLE SCLEROSIS
     Dosage: 300 MG; QM; IV
     Route: 042
     Dates: start: 20071201, end: 20080901

REACTIONS (1)
  - HAEMATOMA [None]
